FAERS Safety Report 13661426 (Version 1)
Quarter: 2017Q2

REPORT INFORMATION
  Report Type: Spontaneous
  Country: US (occurrence: US)
  Receive Date: 20170616
  Receipt Date: 20170616
  Transmission Date: 20170830
  Serious: No
  Sender: FDA-Public Use
  Company Number: US-US WORLDMEDS, LLC-USW201611-000768

PATIENT
  Sex: Male

DRUGS (4)
  1. DUOPA [Concomitant]
     Active Substance: CARBIDOPA\LEVODOPA
  2. REQUIP [Concomitant]
     Active Substance: ROPINIROLE HYDROCHLORIDE
  3. ENTACAPONE. [Concomitant]
     Active Substance: ENTACAPONE
  4. APOKYN [Suspect]
     Active Substance: APOMORPHINE HYDROCHLORIDE
     Indication: PARKINSON^S DISEASE
     Dates: start: 20160111

REACTIONS (1)
  - Therapeutic response shortened [Unknown]
